FAERS Safety Report 7007067-5 (Version None)
Quarter: 2010Q3

REPORT INFORMATION
  Report Type: 
  Country: None (occurrence: None)
  Receive Date: 20100913
  Receipt Date: 20100830
  Transmission Date: 20110219
  Serious: Yes (Other)
  Sender: FDA-Public Use
  Company Number: 2010SP046870

PATIENT
  Age: 87 Year
  Sex: Male

DRUGS (3)
  1. TICE BCG [Suspect]
     Indication: BLADDER CANCER
     Dosage: INVES
     Dates: start: 20100825
  2. PLAVIX (CON.) [Concomitant]
  3. AGGRNOX (CON.) [Concomitant]

REACTIONS (6)
  - ANURIA [None]
  - ASTHENIA [None]
  - BLADDER OBSTRUCTION [None]
  - DEAFNESS [None]
  - DECREASED APPETITE [None]
  - LETHARGY [None]
